FAERS Safety Report 6846007-6 (Version None)
Quarter: 2010Q3

REPORT INFORMATION
  Report Type: 
  Country: None (occurrence: None)
  Receive Date: 20100715
  Receipt Date: 20071117
  Transmission Date: 20110219
  Serious: No
  Sender: FDA-Public Use
  Company Number: US-PFIZER INC-2007073040

PATIENT
  Sex: Male
  Weight: 77.272 kg

DRUGS (5)
  1. CHANTIX [Suspect]
     Indication: SMOKING CESSATION THERAPY
     Route: 048
     Dates: start: 20070601
  2. LAMICTAL [Concomitant]
  3. LITHIUM [Concomitant]
  4. ZOCOR [Concomitant]
  5. ACETYLSALICYLIC ACID [Concomitant]

REACTIONS (3)
  - ABDOMINAL PAIN LOWER [None]
  - MUSCULAR WEAKNESS [None]
  - SOMNOLENCE [None]
